FAERS Safety Report 25035917 (Version 1)
Quarter: 2025Q1

REPORT INFORMATION
  Report Type: Spontaneous
  Country: DE (occurrence: DE)
  Receive Date: 20250304
  Receipt Date: 20250304
  Transmission Date: 20250409
  Serious: Yes (Other)
  Sender: ALEXION PHARMACEUTICALS
  Company Number: DE-AstraZeneca-2024A084602

PATIENT

DRUGS (1)
  1. TAGRISSO [Suspect]
     Active Substance: OSIMERTINIB
     Indication: Breast cancer
     Dosage: 80 MILLIGRAM, QD

REACTIONS (4)
  - Placental insufficiency [Unknown]
  - Exposure during pregnancy [Unknown]
  - Caesarean section [Unknown]
  - Premature labour [Unknown]
